FAERS Safety Report 6819586-2 (Version None)
Quarter: 2010Q3

REPORT INFORMATION
  Report Type: 
  Country: None (occurrence: None)
  Receive Date: 20100701
  Receipt Date: 20090901
  Transmission Date: 20110219
  Serious: Yes (Other)
  Sender: FDA-Public Use
  Company Number: US-TEVA-207960USA

PATIENT

DRUGS (2)
  1. AZILECT [Suspect]
  2. FLUOXETINE HYDROCHLORIDE [Suspect]

REACTIONS (1)
  - SEROTONIN SYNDROME [None]
